FAERS Safety Report 8297553-2 (Version None)
Quarter: 2012Q2

REPORT INFORMATION
  Report Type: 
  Country: None (occurrence: None)
  Receive Date: 20120419
  Receipt Date: 20120410
  Transmission Date: 20120825
  Serious: Yes (Hospitalization)
  Sender: FDA-Public Use
  Company Number: US-CELGENEUS-163-21880-10110169

PATIENT
  Sex: Female
  Weight: 66.284 kg

DRUGS (19)
  1. LISINOPRIL [Concomitant]
     Dosage: 10 MILLIGRAM
     Route: 048
     Dates: end: 20100101
  2. BUMEX [Concomitant]
     Dosage: 1 MILLIGRAM
     Route: 048
  3. SYNTHROID [Concomitant]
     Dosage: 112 MICROGRAM
     Route: 048
     Dates: start: 20101029
  4. AMBIEN [Concomitant]
     Dosage: 5-10MG
     Route: 048
  5. REVLIMID [Suspect]
     Dosage: 2.5 MILLIGRAM
     Route: 048
     Dates: start: 20100921, end: 20101029
  6. ASPIRIN [Concomitant]
     Dosage: 81 MILLIGRAM
     Route: 048
  7. PHOSPHORUS [Concomitant]
     Route: 041
     Dates: start: 20101029
  8. ZOVIRAX [Concomitant]
     Dosage: 5 PERCENT
     Route: 061
  9. BENADRYL [Concomitant]
     Route: 065
  10. POTASSIUM PHOSPHATES [Concomitant]
     Dosage: 155-852-130MG
     Route: 048
     Dates: start: 20101029
  11. LORATADINE [Concomitant]
     Dosage: 10 MILLIGRAM
     Route: 048
  12. REVLIMID [Suspect]
     Dosage: 2.5 MILLIGRAM
     Route: 048
     Dates: start: 20101031
  13. RITUXIMAB [Suspect]
     Dosage: 375 MILLIGRAM/SQ. METER
     Route: 065
     Dates: start: 20101019, end: 20101026
  14. ALLOPURINOL [Concomitant]
     Dosage: 100 MILLIGRAM
     Route: 048
  15. MEDROL [Concomitant]
     Dosage: DOSE-PAK
     Route: 041
     Dates: start: 20101029
  16. LEVAQUIN [Concomitant]
     Dosage: 500 MILLIGRAM
     Route: 048
     Dates: start: 20101028, end: 20100101
  17. IMMUNE GLOBULIN INTRAVENOUS (HUMAN) [Concomitant]
     Dosage: 25 GRAM
     Route: 065
  18. SOLU-MEDROL [Concomitant]
     Dosage: 40 MILLIGRAM
     Route: 041
     Dates: start: 20101001, end: 20100101
  19. FAMOTIDINE [Concomitant]
     Dosage: 10 MILLIGRAM
     Route: 048

REACTIONS (4)
  - RHEUMATOID ARTHRITIS [None]
  - DIARRHOEA [None]
  - TUMOUR FLARE [None]
  - HYPOPHOSPHATAEMIA [None]
